FAERS Safety Report 8558737-9 (Version None)
Quarter: 2012Q3

REPORT INFORMATION
  Report Type: 
  Country: None (occurrence: None)
  Receive Date: 20120801
  Receipt Date: 20120717
  Transmission Date: 20120928
  Serious: Yes (Disabling, Other)
  Sender: FDA-Public Use
  Company Number: US-009507513-2012SP011818

PATIENT

DRUGS (2)
  1. NUVARING [Suspect]
     Indication: CONTRACEPTION
     Dosage: UNK
     Dates: start: 20081001
  2. NUVARING [Suspect]
     Dosage: UNK
     Dates: start: 20090212, end: 20090301

REACTIONS (14)
  - CEREBROVASCULAR ACCIDENT [None]
  - DYSMENORRHOEA [None]
  - DEEP VEIN THROMBOSIS [None]
  - HEADACHE [None]
  - FATIGUE [None]
  - CENTRAL NERVOUS SYSTEM INFLAMMATION [None]
  - HYPOTHYROIDISM [None]
  - MENSTRUATION IRREGULAR [None]
  - HAEMATURIA [None]
  - MULTIPLE SCLEROSIS [None]
  - NEUROPATHY PERIPHERAL [None]
  - MUSCLE SPASMS [None]
  - RADICULOPATHY [None]
  - VAGINAL HAEMORRHAGE [None]
